FAERS Safety Report 15946202 (Version 1)
Quarter: 2019Q1

REPORT INFORMATION
  Report Type: Spontaneous
  Country: US (occurrence: US)
  Receive Date: 20190211
  Receipt Date: 20190211
  Transmission Date: 20190417
  Serious: No
  Sender: FDA-Public Use
  Company Number: US-009507513-1901USA006453

PATIENT
  Age: 86 Year
  Sex: Male

DRUGS (1)
  1. TICE BCG [Suspect]
     Active Substance: BACILLUS CALMETTE-GUERIN SUBSTRAIN TICE LIVE ANTIGEN
     Indication: BLADDER CANCER
     Dosage: 1 VIAL EVERY WEEK
     Route: 043
     Dates: start: 2013

REACTIONS (1)
  - Bladder neck obstruction [Not Recovered/Not Resolved]

NARRATIVE: CASE EVENT DATE: 20190116
